FAERS Safety Report 9682733 (Version 2)
Quarter: 2014Q1

REPORT INFORMATION
  Report Type: Spontaneous
  Country: US (occurrence: US)
  Receive Date: 20131112
  Receipt Date: 20140113
  Transmission Date: 20141002
  Serious: Yes (Other)
  Sender: FDA-Public Use
  Company Number: US-JNJFOC-20131102789

PATIENT
  Sex: Male
  Weight: 103.87 kg

DRUGS (4)
  1. STELARA [Suspect]
     Indication: PSORIASIS
     Dosage: /0.5 ML
     Route: 058
     Dates: start: 20121029, end: 20130618
  2. LISINOPRIL [Concomitant]
     Indication: HYPERTENSION
     Route: 065
  3. TAZTIA XT [Concomitant]
     Indication: HYPERTENSION
     Route: 065
  4. PREDNISONE [Concomitant]
     Indication: SARCOIDOSIS
     Route: 065
     Dates: start: 20131007

REACTIONS (5)
  - Sarcoidosis [Recovering/Resolving]
  - Renal failure acute [Unknown]
  - Hydronephrosis [Unknown]
  - Splenomegaly [Unknown]
  - Nephrolithiasis [Recovering/Resolving]
